FAERS Safety Report 11690247 (Version 1)
Quarter: 2015Q4

REPORT INFORMATION
  Report Type: Report from Study
  Country: BR (occurrence: BR)
  Receive Date: 20151102
  Receipt Date: 20151102
  Transmission Date: 20160304
  Serious: Yes (Other)
  Sender: FDA-Public Use
  Company Number: PHHY2015BR060117

PATIENT
  Sex: Female
  Weight: 51 kg

DRUGS (1)
  1. SANDOSTATIN LAR DEPOT [Suspect]
     Active Substance: OCTREOTIDE ACETATE
     Indication: PANCREATIC NEUROENDOCRINE TUMOUR
     Dosage: 1 DF, EVERY 28 DAYS
     Route: 065
     Dates: start: 201205

REACTIONS (3)
  - Neoplasm [Unknown]
  - Weight decreased [Unknown]
  - Hepatic neoplasm [Unknown]
